FAERS Safety Report 14823064 (Version 1)
Quarter: 2018Q2

REPORT INFORMATION
  Report Type: Spontaneous
  Country: HR (occurrence: HR)
  Receive Date: 20180427
  Receipt Date: 20180427
  Transmission Date: 20180711
  Serious: Yes (Hospitalization)
  Sender: FDA-Public Use
  Company Number: HR-ELI_LILLY_AND_COMPANY-HR201804008650

PATIENT
  Age: 54 Year
  Sex: Female

DRUGS (1)
  1. ZYPADHERA [Suspect]
     Active Substance: OLANZAPINE PAMOATE
     Indication: PRODUCT USED FOR UNKNOWN INDICATION
     Dosage: 210 MG, UNKNOWN
     Route: 065
     Dates: start: 20140903

REACTIONS (4)
  - Paraplegia [Unknown]
  - Somnolence [Unknown]
  - Restlessness [Unknown]
  - Tremor [Unknown]

NARRATIVE: CASE EVENT DATE: 20180411
